FAERS Safety Report 15947673 (Version 2)
Quarter: 2019Q1

REPORT INFORMATION
  Report Type: Spontaneous
  Country: JP (occurrence: JP)
  Receive Date: 20190212
  Receipt Date: 20190228
  Transmission Date: 20190417
  Serious: Yes (Hospitalization, Other)
  Sender: FDA-Public Use
  Company Number: JP-009507513-1902JPN000591J

PATIENT
  Age: 73 Year
  Sex: Male
  Weight: 50 kg

DRUGS (19)
  1. THERAPY UNSPECIFIED [Suspect]
     Active Substance: UNSPECIFIED INGREDIENT
     Dosage: UNK
     Route: 048
  2. CARBAMAZEPINE. [Concomitant]
     Active Substance: CARBAMAZEPINE
     Dosage: UNK
     Route: 065
  3. AZELNIDIPINE [Concomitant]
     Active Substance: AZELNIDIPINE
     Dosage: UNK
     Route: 065
  4. RABEPRAZOLE NA [Concomitant]
     Active Substance: RABEPRAZOLE SODIUM
     Dosage: UNK
     Route: 065
  5. FEXOFENADINE HYDROCHLORIDE. [Concomitant]
     Active Substance: FEXOFENADINE HYDROCHLORIDE
     Dosage: UNK
     Route: 065
  6. LOSARTAN POTASSIUM. [Suspect]
     Active Substance: LOSARTAN POTASSIUM
  7. LIMAPROST ALFADEX [Concomitant]
     Active Substance: LIMAPROST
     Dosage: UNK
     Route: 065
  8. HEPARINOID [Concomitant]
     Active Substance: CHONDROITIN SULFATE (BOVINE)
     Dosage: UNK
     Route: 051
  9. DIFLUPREDNATE [Concomitant]
     Active Substance: DIFLUPREDNATE
     Dosage: UNK
     Route: 051
  10. KETOPROFEN. [Concomitant]
     Active Substance: KETOPROFEN
     Dosage: UNK
     Route: 051
  11. DIGOXIN. [Concomitant]
     Active Substance: DIGOXIN
     Dosage: UNK
     Route: 065
  12. HYALURONATE SODIUM [Concomitant]
     Active Substance: HYALURONATE SODIUM
     Dosage: UNK
     Route: 051
  13. VACCINIA VIRUS VACCINE [Concomitant]
     Dosage: UNK
     Route: 065
  14. MECOBALAMIN [Concomitant]
     Active Substance: METHYLCOBALAMIN
     Dosage: UNK
     Route: 065
  15. SILODOSIN. [Concomitant]
     Active Substance: SILODOSIN
     Dosage: UNK
     Route: 065
  16. URSODEOXYCHOLIC ACID [Concomitant]
     Active Substance: URSODIOL
     Dosage: UNK
     Route: 065
  17. ASPIRIN. [Concomitant]
     Active Substance: ASPIRIN
     Dosage: UNK
     Route: 065
  18. TORASEMIDE [Concomitant]
     Active Substance: TORSEMIDE
     Dosage: UNK
     Route: 065
  19. WARFARIN [Concomitant]
     Active Substance: WARFARIN
     Dosage: UNK
     Route: 065

REACTIONS (7)
  - Hyponatraemia [Unknown]
  - Adrenal insufficiency [Unknown]
  - Nausea [Recovering/Resolving]
  - Decreased appetite [Recovering/Resolving]
  - Dehydration [Recovering/Resolving]
  - Hypopituitarism [Unknown]
  - Infection [Unknown]
